FAERS Safety Report 23694800 (Version 1)
Quarter: 2024Q2

REPORT INFORMATION
  Report Type: Spontaneous
  Country: FR (occurrence: FR)
  Receive Date: 20240402
  Receipt Date: 20240402
  Transmission Date: 20240716
  Serious: Yes (Hospitalization)
  Sender: FDA-Public Use
  Company Number: None

PATIENT
  Age: 63 Year
  Sex: Female
  Weight: 85 kg

DRUGS (7)
  1. PANTOPRAZOLE [Suspect]
     Active Substance: PANTOPRAZOLE
     Indication: Gastritis prophylaxis
     Route: 048
     Dates: start: 20240116, end: 20240118
  2. BETADINE [Suspect]
     Active Substance: POVIDONE-IODINE
     Indication: Surgery
     Dosage: TIME INTERVAL: TOTAL: WHITEWASHING DURING ANGIOPLASTY, SCRUB 4 PER CENT, SOLUTION FOR SKIN APPLIC...
     Route: 003
     Dates: start: 20240116, end: 20240116
  3. ATORVASTATIN [Suspect]
     Active Substance: ATORVASTATIN
     Indication: Dyslipidaemia
     Route: 048
     Dates: start: 20240111, end: 20240118
  4. KARDEGIC [Suspect]
     Active Substance: ASPIRIN DL-LYSINE
     Indication: Aortic stent insertion
     Dosage: 160 MG, POWDER FOR ORAL SOLUTION IN SACHET
     Route: 048
     Dates: start: 20240111
  5. TICAGRELOR [Suspect]
     Active Substance: TICAGRELOR
     Indication: Aortic stent insertion
     Route: 048
     Dates: start: 20240111
  6. EZETIMIBE [Suspect]
     Active Substance: EZETIMIBE
     Indication: Dyslipidaemia
     Route: 048
     Dates: start: 20240111, end: 20240118
  7. ACETAMINOPHEN [Suspect]
     Active Substance: ACETAMINOPHEN
     Indication: Pain
     Route: 048
     Dates: start: 20240111, end: 20240119

REACTIONS (1)
  - Rash maculo-papular [Recovering/Resolving]

NARRATIVE: CASE EVENT DATE: 20240117
